FAERS Safety Report 8840220 (Version 4)
Quarter: 2013Q4

REPORT INFORMATION
  Report Type: Report from Study
  Country: JP (occurrence: JP)
  Receive Date: 20121015
  Receipt Date: 20131028
  Transmission Date: 20140711
  Serious: Yes (Other)
  Sender: FDA-Public Use
  Company Number: JP-VERTEX PHARMACEUTICAL INC.-AE-2012-008530

PATIENT
  Age: 66 Year
  Sex: Female

DRUGS (6)
  1. VX-950 (TELAPREVIR) [Suspect]
     Indication: CHRONIC HEPATITIS C
     Dosage: 2250 MG, QD
     Route: 048
     Dates: start: 20120412, end: 20120424
  2. REBETOL [Suspect]
     Indication: CHRONIC HEPATITIS C
     Dosage: 600 MG, QD
     Route: 048
     Dates: start: 20120412, end: 20120509
  3. REBETOL [Suspect]
     Dosage: 400 MG, QD
     Route: 048
     Dates: start: 20120510
  4. PEGINTERFERON ALFA-2B [Suspect]
     Indication: CHRONIC HEPATITIS C
     Dosage: 1.5 ?G/KG, QW
     Route: 058
     Dates: start: 20120412, end: 20120524
  5. PEGINTERFERON ALFA-2B [Suspect]
     Dosage: 1.125 ?G/KG, QW
     Route: 058
     Dates: start: 20120531
  6. DEXALTIN [Concomitant]
     Dosage: UNK UNK, PRN
     Route: 049
     Dates: start: 20120425, end: 20120430

REACTIONS (2)
  - Oral mucosa erosion [Recovered/Resolved]
  - Agranulocytosis [Recovered/Resolved]
